FAERS Safety Report 8985547 (Version 2)
Quarter: 2013Q1

REPORT INFORMATION
  Report Type: Report from Study
  Country: BR (occurrence: BR)
  Receive Date: 20121226
  Receipt Date: 20130117
  Transmission Date: 20140127
  Serious: Yes (Other)
  Sender: FDA-Public Use
  Company Number: BR-PFIZER INC-2012322705

PATIENT
  Age: 14 Year
  Sex: Male
  Weight: 42.3 kg

DRUGS (1)
  1. GENOTROPIN [Suspect]
     Indication: GROWTH RETARDATION
     Dosage: 1 MG, 1X/DAY
     Route: 058
     Dates: start: 20090507

REACTIONS (1)
  - CNS germinoma [Not Recovered/Not Resolved]
